FAERS Safety Report 10488406 (Version 1)
Quarter: 2014Q4

REPORT INFORMATION
  Report Type: Spontaneous
  Country: US (occurrence: None)
  Receive Date: 20141001
  Receipt Date: 20141001
  Transmission Date: 20150528
  Serious: Yes (Other)
  Sender: FDA-Public Use
  Company Number: None

PATIENT
  Sex: Male
  Weight: 68.04 kg

DRUGS (4)
  1. HYDROCHLOROTHIAZIDE. [Suspect]
     Active Substance: HYDROCHLOROTHIAZIDE
     Indication: BLOOD PRESSURE
     Dosage: 50 MG  ONE / D,  ONE / DAY  PO
     Route: 048
     Dates: start: 2009, end: 20140801
  2. BYSTOLIC [Concomitant]
     Active Substance: NEBIVOLOL HYDROCHLORIDE
  3. ZESTORIL [Concomitant]
  4. BENICAR [Concomitant]
     Active Substance: OLMESARTAN MEDOXOMIL

REACTIONS (1)
  - Rash [None]

NARRATIVE: CASE EVENT DATE: 2010
